FAERS Safety Report 9206583 (Version 2)
Quarter: 2014Q1

REPORT INFORMATION
  Report Type: Spontaneous
  Country: US (occurrence: US)
  Receive Date: 20130403
  Receipt Date: 20140203
  Transmission Date: 20141002
  Serious: Yes (Other)
  Sender: FDA-Public Use
  Company Number: US-BAYER-2013-040467

PATIENT
  Age: 20 Year
  Sex: Female

DRUGS (3)
  1. YAZ [Suspect]
     Dosage: UNK
     Dates: start: 2006
  2. YASMIN [Suspect]
     Dosage: UNK
     Dates: start: 2006
  3. METFORMIN [Concomitant]
     Dosage: 6 MONTHS ON AND 6 MONTHS OFF
     Route: 048
     Dates: start: 200501, end: 200506

REACTIONS (3)
  - Cholecystectomy [None]
  - Injury [None]
  - Cholecystitis chronic [None]
